FAERS Safety Report 11852610 (Version 1)
Quarter: 2015Q4

REPORT INFORMATION
  Report Type: Spontaneous
  Country: US (occurrence: US)
  Receive Date: 20151218
  Receipt Date: 20151218
  Transmission Date: 20160305
  Serious: No
  Sender: FDA-Public Use
  Company Number: US-SIGMAPHARM LABORATORIES, LLC-2015SIG00045

PATIENT
  Sex: Female

DRUGS (2)
  1. LIOTHYRONINE SODIUM. [Suspect]
     Active Substance: LIOTHYRONINE SODIUM
     Indication: THYROID DISORDER
     Dosage: 5 MCG, ONCE
     Route: 048
     Dates: start: 20151105, end: 20151105
  2. UNSPECIFIED ^OTHER MEDICATIONS^ [Concomitant]

REACTIONS (1)
  - Palpitations [Recovered/Resolved]
